FAERS Safety Report 12674147 (Version 1)
Quarter: 2016Q3

REPORT INFORMATION
  Report Type: Report from Study
  Country: US (occurrence: US)
  Receive Date: 20160822
  Receipt Date: 20160822
  Transmission Date: 20161109
  Serious: Yes (Death)
  Sender: FDA-Public Use
  Company Number: US-ASTRAZENECA-2016SE89451

PATIENT
  Age: 1099 Month
  Sex: Female
  Weight: 95.3 kg

DRUGS (11)
  1. HALDOL [Concomitant]
     Active Substance: HALOPERIDOL
  2. SYMBICORT [Suspect]
     Active Substance: BUDESONIDE\FORMOTEROL FUMARATE DIHYDRATE
     Indication: CHRONIC OBSTRUCTIVE PULMONARY DISEASE
     Dosage: 80/4.5MCG
     Route: 055
  3. PRILOSEC [Suspect]
     Active Substance: OMEPRAZOLE MAGNESIUM
     Route: 048
  4. LASIX [Concomitant]
     Active Substance: FUROSEMIDE
  5. MORPHINE [Concomitant]
     Active Substance: MORPHINE
  6. SYMBICORT [Suspect]
     Active Substance: BUDESONIDE\FORMOTEROL FUMARATE DIHYDRATE
     Indication: CHRONIC OBSTRUCTIVE PULMONARY DISEASE
     Dosage: 160/4.5MCG
     Route: 055
  7. SPIRONOLACTONE. [Concomitant]
     Active Substance: SPIRONOLACTONE
  8. PREDNISONE. [Concomitant]
     Active Substance: PREDNISONE
  9. LORAZEPAM. [Concomitant]
     Active Substance: LORAZEPAM
  10. ATROPINE. [Concomitant]
     Active Substance: ATROPINE
  11. LIQUID ATIVAN [Concomitant]

REACTIONS (7)
  - Bundle branch block left [Unknown]
  - Cardiac failure congestive [Unknown]
  - Death [Fatal]
  - Vasculitis [Unknown]
  - Chronic obstructive pulmonary disease [Unknown]
  - Weight decreased [Unknown]
  - Pain [Unknown]

NARRATIVE: CASE EVENT DATE: 201604
